FAERS Safety Report 13278030 (Version 3)
Quarter: 2018Q3

REPORT INFORMATION
  Report Type: Spontaneous
  Country: US (occurrence: US)
  Receive Date: 20170228
  Receipt Date: 20180927
  Transmission Date: 20181010
  Serious: No
  Sender: FDA-Public Use
  Company Number: US-PFIZER INC-2017083797

PATIENT
  Age: 70 Year
  Sex: Female

DRUGS (14)
  1. COQ 10 [Concomitant]
     Active Substance: UBIDECARENONE
     Dosage: UNK, 300
  2. PLAQUENIL [HYDROXYCHLOROQUINE SULFATE] [Concomitant]
     Dosage: 200 MG, 2X/DAY (ONE TABLET TWICE DAILY)
     Route: 048
  3. LEVOTHROID [Concomitant]
     Active Substance: LEVOTHYROXINE SODIUM
     Dosage: 25 UG, 1X/DAY (ONE PILL DAILY)
     Dates: start: 2013
  4. LIPITOR [Concomitant]
     Active Substance: ATORVASTATIN CALCIUM
     Dosage: 80 MG, DAILY (ONE PILL DAILY)
     Dates: start: 2010
  5. ARAVA [Concomitant]
     Active Substance: LEFLUNOMIDE
     Dosage: 20 MG, DAILY (ONE TABLET EVERYDAY)
     Route: 048
     Dates: start: 2012
  6. COZAAR [Concomitant]
     Active Substance: LOSARTAN POTASSIUM
     Dosage: 25 MG, DAILY (ONE EVERYDAY)
     Route: 048
     Dates: start: 2015
  7. ZETIA [Concomitant]
     Active Substance: EZETIMIBE
     Dosage: 5 MG, UNK
  8. ELAVIL [AMITRIPTYLINE HYDROCHLORIDE] [Concomitant]
     Dosage: 50 MG, 1X/DAY (ONE PILL AT BEDTIME)
  9. CALCIUM 600 + D3 PLUS MINERALS [Concomitant]
     Dosage: UNK, VITA 5000
  10. WELLBUTRIN SR [Concomitant]
     Active Substance: BUPROPION HYDROCHLORIDE
     Dosage: 150 MG, DAILY (ONE PILL DAILY)
     Dates: start: 2000
  11. OMEGA 3 FISH OIL [Concomitant]
     Active Substance: FISH OIL\OMEGA-3 FATTY ACIDS
     Dosage: 1000 MG, UNK
  12. CATAPRES [Concomitant]
     Active Substance: CLONIDINE HYDROCHLORIDE
     Dosage: 0.2 MG, 1X/DAY (ONE PILL DAILY AT BEDTIME)
     Dates: start: 2010
  13. XELJANZ XR [Suspect]
     Active Substance: TOFACITINIB CITRATE
     Dosage: 11 MG, DAILY
     Route: 048
     Dates: start: 2015
  14. MAGNESIUM [Concomitant]
     Active Substance: MAGNESIUM
     Dosage: 200 MG, UNK

REACTIONS (3)
  - Cough [Unknown]
  - Cyst [Not Recovered/Not Resolved]
  - Vertigo [Recovered/Resolved]

NARRATIVE: CASE EVENT DATE: 201511
